FAERS Safety Report 14702711 (Version 2)
Quarter: 2018Q2

REPORT INFORMATION
  Report Type: Spontaneous
  Country: US (occurrence: US)
  Receive Date: 20180402
  Receipt Date: 20180412
  Transmission Date: 20180711
  Serious: Yes (Other)
  Sender: FDA-Public Use
  Company Number: US-GLENMARK PHARMACEUTICALS-2018GMK033889

PATIENT
  Age: 62 Year
  Sex: Male

DRUGS (12)
  1. AMPHOTERICIN B. [Suspect]
     Active Substance: AMPHOTERICIN B
     Indication: MENINGITIS COCCIDIOIDES
     Dosage: 5 MG/KG, QD, LIPOSOMAL
     Route: 065
  2. MINOCYCLINE [Concomitant]
     Active Substance: MINOCYCLINE\MINOCYCLINE HYDROCHLORIDE
     Indication: MENINGITIS COCCIDIOIDES
     Dosage: UNK
     Route: 065
  3. VORICONAZOLE. [Suspect]
     Active Substance: VORICONAZOLE
     Dosage: 200 MG, BID
     Route: 065
  4. FLUCONAZOLE. [Suspect]
     Active Substance: FLUCONAZOLE
     Indication: MENINGITIS COCCIDIOIDES
     Dosage: 1200 MG, QD
     Route: 065
  5. ITRACONAZOLE. [Suspect]
     Active Substance: ITRACONAZOLE
     Indication: MENINGITIS COCCIDIOIDES
     Dosage: 200 MG, BID
     Route: 065
  6. GM-CSF [Concomitant]
     Active Substance: GRANULOCYTE-MACROPHAGE COLONY-STIMULATING FACTOR
     Indication: LEUKAEMIA RECURRENT
     Dosage: 500 MCG, TID
     Route: 065
  7. VORICONAZOLE. [Suspect]
     Active Substance: VORICONAZOLE
     Indication: MENINGITIS COCCIDIOIDES
     Dosage: 200 MG, BID
     Route: 048
  8. ITRACONAZOLE. [Suspect]
     Active Substance: ITRACONAZOLE
     Indication: MENINGITIS COCCIDIOIDES
     Dosage: UNK
     Route: 065
  9. AMPHOTERICIN B LIPID COMPLEX [Concomitant]
     Active Substance: AMPHOTERICIN B
     Indication: MENINGITIS COCCIDIOIDES
     Dosage: 5 MG/KG, QD, THREE TIMES WEEKLY
     Route: 065
  10. VORICONAZOLE. [Suspect]
     Active Substance: VORICONAZOLE
     Dosage: 300 MG, BID
     Route: 065
  11. FLUCONAZOLE. [Suspect]
     Active Substance: FLUCONAZOLE
     Dosage: 800 MG, UNK
     Route: 065
  12. LEVOFLOXACIN. [Concomitant]
     Active Substance: LEVOFLOXACIN
     Indication: MENINGITIS COCCIDIOIDES
     Dosage: UNK
     Route: 065

REACTIONS (10)
  - Product use in unapproved indication [Unknown]
  - Sensory loss [Unknown]
  - Periostitis [Unknown]
  - Toxicity to various agents [Unknown]
  - Squamous cell carcinoma [Unknown]
  - Fluorosis [Unknown]
  - Neuropathy peripheral [Unknown]
  - Alopecia [Unknown]
  - Actinic keratosis [Unknown]
  - Photopsia [Unknown]
